FAERS Safety Report 6934532-9 (Version None)
Quarter: 2010Q3

REPORT INFORMATION
  Report Type: 
  Country: None (occurrence: None)
  Receive Date: 20100820
  Receipt Date: 20100812
  Transmission Date: 20110219
  Serious: Yes (Other)
  Sender: FDA-Public Use
  Company Number: US-AMGEN-QUU414601

PATIENT
  Sex: Female

DRUGS (16)
  1. ENBREL [Suspect]
     Indication: RHEUMATOID ARTHRITIS
     Route: 058
     Dates: start: 20070501
  2. ENBREL [Suspect]
     Indication: PSORIASIS
  3. LISINOPRIL [Concomitant]
     Route: 048
  4. ALPRAZOLAM [Concomitant]
     Route: 048
  5. RANITIDINE [Concomitant]
     Route: 048
  6. CYMBALTA [Concomitant]
     Route: 048
  7. SINGULAIR [Concomitant]
     Route: 048
  8. DEXAMETHASONE [Concomitant]
     Route: 048
  9. DOVONEX [Concomitant]
  10. LASIX [Concomitant]
     Route: 048
  11. NYSTATIN [Concomitant]
  12. METOPROLOL TARTRATE [Concomitant]
     Route: 048
  13. TRAMADOL [Concomitant]
     Route: 048
  14. ALLERGY MEDICATION [Concomitant]
     Route: 048
  15. GLUCOSAMINE W/CHONDROITIN SULFATES [Concomitant]
     Route: 048
  16. UNSPECIFIED MEDICATION [Concomitant]
     Route: 048

REACTIONS (2)
  - ADRENAL DISORDER [None]
  - OSTEOARTHRITIS [None]
